FAERS Safety Report 17430676 (Version 1)
Quarter: 2020Q1

REPORT INFORMATION
  Report Type: Spontaneous
  Country: FR (occurrence: FR)
  Receive Date: 20200218
  Receipt Date: 20200218
  Transmission Date: 20200409
  Serious: Yes (Hospitalization)
  Sender: FDA-Public Use
  Company Number: FR-MYLANLABS-2020M1016494

PATIENT
  Age: 57 Year
  Sex: Male
  Weight: 76 kg

DRUGS (5)
  1. LEVETIRACETAM MYLAN PHARMA 500 MG, COMPRIM? PELLICUL? [Suspect]
     Active Substance: LEVETIRACETAM
     Indication: EPILEPSY
     Dosage: 2 DOSAGE FORM, QD
     Route: 048
     Dates: start: 20190620
  2. DOLIPRANE [Suspect]
     Active Substance: ACETAMINOPHEN
     Indication: ANALGESIC INTERVENTION SUPPORTIVE THERAPY
     Dosage: 1 DOSAGE FORM, Q6H
     Route: 048
     Dates: start: 20191116
  3. LOVENOX [Suspect]
     Active Substance: ENOXAPARIN SODIUM
     Indication: THROMBOSIS PROPHYLAXIS
     Dosage: 1 DOSAGE FORM, QD
     Route: 058
     Dates: start: 20191126
  4. NALBUPHINE MYLAN 20 MG/ 2ML, SOLUTION INJECTABLE (IV-SC-IM) [Suspect]
     Active Substance: NALBUPHINE
     Indication: ANALGESIC INTERVENTION SUPPORTIVE THERAPY
     Dosage: 20 MILLIGRAM, Q6H
     Route: 042
     Dates: start: 20191116
  5. PANTOPRAZOLE MYLAN 20 MG, COMPRIM? GASTRO-R?SISTANT [Suspect]
     Active Substance: PANTOPRAZOLE SODIUM
     Indication: PROPHYLAXIS AGAINST GASTROINTESTINAL ULCER
     Dosage: 1 DOSAGE FORM, QD
     Route: 048
     Dates: start: 20191116, end: 20191206

REACTIONS (1)
  - Pancytopenia [Recovering/Resolving]

NARRATIVE: CASE EVENT DATE: 20191202
